FAERS Safety Report 8287319-1 (Version None)
Quarter: 2012Q2

REPORT INFORMATION
  Report Type: 
  Country: None (occurrence: None)
  Receive Date: 20120416
  Receipt Date: 20120416
  Transmission Date: 20120825
  Serious: No
  Sender: FDA-Public Use
  Company Number: None

PATIENT
  Age: 19 Year
  Sex: Female
  Weight: 86.182 kg

DRUGS (3)
  1. MIRENA [Suspect]
     Indication: MENORRHAGIA
     Dosage: 20 MCG
     Route: 015
     Dates: start: 20120316, end: 20120415
  2. PAROXETINE [Concomitant]
  3. PRENATALS OTC [Concomitant]

REACTIONS (6)
  - VOMITING [None]
  - VAGINAL ODOUR [None]
  - HYPERHIDROSIS [None]
  - HOT FLUSH [None]
  - NIGHT SWEATS [None]
  - NAUSEA [None]
